FAERS Safety Report 17109613 (Version 2)
Quarter: 2019Q4

REPORT INFORMATION
  Report Type: Report from Study
  Country: EC (occurrence: EC)
  Receive Date: 20191204
  Receipt Date: 20191217
  Transmission Date: 20200122
  Serious: Yes (Other)
  Sender: FDA-Public Use
  Company Number: EC-EMD SERONO-9103506

PATIENT
  Sex: Female

DRUGS (3)
  1. SAIZEN [Suspect]
     Active Substance: SOMATROPIN
     Dosage: DOSE REDUCED AND THEN STOPPED
     Route: 058
     Dates: start: 2019, end: 20190705
  2. SAIZEN [Suspect]
     Active Substance: SOMATROPIN
     Dosage: TREATMENT RESTARTED AND SUSPENDED AGAIN
     Route: 058
     Dates: start: 20190805, end: 2019
  3. SAIZEN [Suspect]
     Active Substance: SOMATROPIN
     Indication: GROWTH HORMONE DEFICIENCY
     Route: 058
     Dates: start: 20190521, end: 2019

REACTIONS (1)
  - Hepatic enzyme increased [Unknown]

NARRATIVE: CASE EVENT DATE: 2019
